FAERS Safety Report 5195190-X (Version None)
Quarter: 2006Q4

REPORT INFORMATION
  Report Type: 
  Country: None (occurrence: None)
  Receive Date: 20061130
  Receipt Date: 20060616
  Transmission Date: 20070319
  Serious: Yes (Other)
  Sender: FDA-Public Use
  Company Number: WAES 0606USA03218

PATIENT
  Age: 89 Year
  Sex: Male

DRUGS (7)
  1. FOSAMAX [Suspect]
     Indication: OSTEOPOROSIS
     Dosage: 70 MG/WKY/PO
     Route: 048
     Dates: start: 20060219, end: 20060519
  2. FLOMAX [Concomitant]
  3. LIPITOR [Concomitant]
  4. PLAVIX [Concomitant]
  5. TOPROL-XL [Concomitant]
  6. ENALAPRIL MALEATE [Concomitant]
  7. FUROSEMIDE [Concomitant]

REACTIONS (7)
  - DENTAL CARIES [None]
  - OSTEONECROSIS [None]
  - SALIVA ALTERED [None]
  - SALIVARY HYPERSECRETION [None]
  - TOOTH EROSION [None]
  - TOOTH FRACTURE [None]
  - TOOTH LOSS [None]
